FAERS Safety Report 25480584 (Version 1)
Quarter: 2025Q2

REPORT INFORMATION
  Report Type: Spontaneous
  Country: GB (occurrence: GB)
  Receive Date: 20250625
  Receipt Date: 20250625
  Transmission Date: 20250716
  Serious: Yes (Other)
  Sender: PFIZER
  Company Number: None

PATIENT
  Age: 34 Year
  Sex: Female
  Weight: 68 kg

DRUGS (1)
  1. DEPO-PROVERA [Suspect]
     Active Substance: MEDROXYPROGESTERONE ACETATE
     Indication: Contraception
     Dates: start: 20090101, end: 20220901

REACTIONS (4)
  - Depression [Unknown]
  - Blood oestrogen decreased [Recovered/Resolved]
  - Chronic fatigue syndrome [Recovered/Resolved]
  - Suicide threat [Recovered/Resolved]

NARRATIVE: CASE EVENT DATE: 20200801
